FAERS Safety Report 7050967-0 (Version None)
Quarter: 2010Q4

REPORT INFORMATION
  Report Type: 
  Country: None (occurrence: None)
  Receive Date: 20101019
  Receipt Date: 20101011
  Transmission Date: 20110411
  Serious: Yes (Hospitalization)
  Sender: FDA-Public Use
  Company Number: IE-US-EMD SERONO, INC.-220004K09IRL

PATIENT
  Sex: Male
  Weight: 108 kg

DRUGS (14)
  1. SAIZEN [Suspect]
     Indication: PITUITARY TUMOUR
     Route: 058
     Dates: start: 20090630
  2. HYDROCORTISONE [Concomitant]
  3. HYDROCORTISONE [Concomitant]
  4. XALATAN [Concomitant]
     Route: 031
  5. NEBIDO [Concomitant]
  6. CALCICHEW D3 FORTE [Concomitant]
  7. TEVETEN HCT [Concomitant]
  8. CAPRIN [Concomitant]
  9. ELTROXIN [Concomitant]
  10. ATORVASTATIN [Concomitant]
  11. NORDURINE [Concomitant]
  12. DALMANE [Concomitant]
  13. DALMANE [Concomitant]
  14. ZANDIP [ZANIDIP] [Concomitant]

REACTIONS (10)
  - ASTHENIA [None]
  - BLOOD SODIUM DECREASED [None]
  - CONFUSIONAL STATE [None]
  - COUGH [None]
  - DISORIENTATION [None]
  - DRY MOUTH [None]
  - FATIGUE [None]
  - MALAISE [None]
  - MUSCLE STRAIN [None]
  - WRONG TECHNIQUE IN DRUG USAGE PROCESS [None]
